FAERS Safety Report 16403365 (Version 1)
Quarter: 2019Q2

REPORT INFORMATION
  Report Type: Spontaneous
  Country: BJ (occurrence: BJ)
  Receive Date: 20190607
  Receipt Date: 20190607
  Transmission Date: 20190711
  Serious: Yes (Death, Life-Threatening, Other)
  Sender: FDA-Public Use
  Company Number: BJ-AMERIGEN PHARMACEUTICALS, INC-2019AMG000020

PATIENT

DRUGS (1)
  1. TRANEXAMIC ACID UNKNOWN [Suspect]
     Active Substance: TRANEXAMIC ACID
     Indication: PRODUCT USED FOR UNKNOWN INDICATION
     Dosage: 3 ML OR 2 ML
     Route: 037

REACTIONS (7)
  - Generalised tonic-clonic seizure [Unknown]
  - Product packaging confusion [Unknown]
  - Status epilepticus [Unknown]
  - Pruritus [Unknown]
  - Wrong product administered [Unknown]
  - Paraesthesia [Unknown]
  - Pulmonary oedema [Fatal]
